FAERS Safety Report 24180221 (Version 4)
Quarter: 2024Q4

REPORT INFORMATION
  Report Type: Spontaneous
  Country: AU (occurrence: AU)
  Receive Date: 20240806
  Receipt Date: 20241009
  Transmission Date: 20250114
  Serious: Yes (Other)
  Sender: CSL BEHRING
  Company Number: AU-BEH-2024176468

PATIENT
  Age: 13 Year
  Weight: 81.5 kg

DRUGS (3)
  1. HUMAN IMMUNOGLOBULIN G [Suspect]
     Active Substance: HUMAN IMMUNOGLOBULIN G
     Indication: Immunodeficiency common variable
     Dosage: 20 G
     Route: 065
     Dates: start: 20230626, end: 20230626
  2. HUMAN IMMUNOGLOBULIN G [Suspect]
     Active Substance: HUMAN IMMUNOGLOBULIN G
     Indication: Haematological malignancy
  3. HUMAN IMMUNOGLOBULIN G [Suspect]
     Active Substance: HUMAN IMMUNOGLOBULIN G
     Indication: Stem cell therapy

REACTIONS (19)
  - Seizure [Unknown]
  - Febrile neutropenia [Unknown]
  - Altered state of consciousness [Unknown]
  - Monoplegia [Unknown]
  - Chills [Recovered/Resolved]
  - Pyrexia [Recovered/Resolved]
  - Heart rate increased [Recovered/Resolved]
  - Hypertension [Recovered/Resolved]
  - Vomiting [Unknown]
  - Dysarthria [Unknown]
  - Facial asymmetry [Unknown]
  - Respiratory rate increased [Recovered/Resolved]
  - Oxygen saturation decreased [Unknown]
  - Feeling abnormal [Unknown]
  - Incontinence [Unknown]
  - Echolalia [Unknown]
  - Incoherent [Unknown]
  - Confusional state [Unknown]
  - Treatment noncompliance [Unknown]
